FAERS Safety Report 17976125 (Version 3)
Quarter: 2023Q1

REPORT INFORMATION
  Report Type: Spontaneous
  Country: US (occurrence: US)
  Receive Date: 20200702
  Receipt Date: 20230217
  Transmission Date: 20230417
  Serious: Yes (Hospitalization, Other)
  Sender: FDA-Public Use
  Company Number: US-GILEAD-2020-0477295

PATIENT
  Age: 47 Year
  Sex: Male

DRUGS (1)
  1. TRUVADA [Suspect]
     Active Substance: EMTRICITABINE\TENOFOVIR DISOPROXIL FUMARATE
     Indication: Prophylaxis against HIV infection
     Dosage: UNK
     Route: 048
     Dates: start: 2012

REACTIONS (3)
  - Renal failure [Not Recovered/Not Resolved]
  - Chronic kidney disease [Unknown]
  - Skeletal injury [Unknown]

NARRATIVE: CASE EVENT DATE: 20191101
